FAERS Safety Report 8164585-4 (Version None)
Quarter: 2012Q1

REPORT INFORMATION
  Report Type: 
  Country: None (occurrence: None)
  Receive Date: 20120227
  Receipt Date: 20120215
  Transmission Date: 20120608
  Serious: Yes (Hospitalization)
  Sender: FDA-Public Use
  Company Number: US-BRISTOL-MYERS SQUIBB COMPANY-16381253

PATIENT
  Age: 57 Year
  Sex: Male

DRUGS (3)
  1. FLUOROURACIL [Suspect]
     Indication: TONGUE CANCER RECURRENT
     Dosage: OVER 4 DAYS
     Route: 042
  2. ERBITUX [Suspect]
     Indication: TONGUE CANCER RECURRENT
     Dosage: INTRP ON 26JAN12
     Route: 042
  3. CISPLATIN [Suspect]
     Indication: TONGUE CANCER RECURRENT
     Dosage: 01/19/12
     Route: 042
     Dates: start: 20120119

REACTIONS (6)
  - ASTHENIA [None]
  - PANCYTOPENIA [None]
  - ENTERITIS [None]
  - BACTERAEMIA [None]
  - MUCOSAL INFLAMMATION [None]
  - RESPIRATORY FAILURE [None]
